FAERS Safety Report 6844522-2 (Version None)
Quarter: 2010Q2

REPORT INFORMATION
  Report Type: 
  Country: None (occurrence: None)
  Receive Date: 20100629
  Receipt Date: 20100506
  Transmission Date: 20101027
  Serious: No
  Sender: FDA-Public Use
  Company Number: US-WYE-H15048110

PATIENT

DRUGS (3)
  1. PRISTIQ [Suspect]
  2. LYRICA [Suspect]
  3. CELEBREX [Concomitant]

REACTIONS (3)
  - BIPOLAR I DISORDER [None]
  - DEPRESSION [None]
  - HYPERTENSION [None]
